FAERS Safety Report 13779007 (Version 7)
Quarter: 2019Q4

REPORT INFORMATION
  Report Type: Spontaneous
  Country: US (occurrence: US)
  Receive Date: 20170721
  Receipt Date: 20191028
  Transmission Date: 20200122
  Serious: No
  Sender: FDA-Public Use
  Company Number: US-PFIZER INC-2017317796

PATIENT
  Age: 73 Year
  Sex: Male

DRUGS (5)
  1. LYRICA [Suspect]
     Active Substance: PREGABALIN
     Indication: SPINAL OSTEOARTHRITIS
  2. LYRICA [Suspect]
     Active Substance: PREGABALIN
     Indication: NEUROPATHY PERIPHERAL
  3. LYRICA [Suspect]
     Active Substance: PREGABALIN
     Indication: RADICULOPATHY
  4. LANTUS [Concomitant]
     Active Substance: INSULIN GLARGINE
     Indication: DIABETES MELLITUS
     Dosage: UNK, 1X/DAY, INJECTION, ONCE A DAY, AT 45MG NOW AND IS INCREASED BY 5 EVERY 3 DAYS
  5. LYRICA [Suspect]
     Active Substance: PREGABALIN
     Indication: DIABETIC NEUROPATHY
     Dosage: 200 MG, TWICE A DAY
     Route: 048

REACTIONS (10)
  - Burning sensation [Not Recovered/Not Resolved]
  - Rhinorrhoea [Unknown]
  - Malaise [Not Recovered/Not Resolved]
  - Gait inability [Unknown]
  - Peripheral swelling [Not Recovered/Not Resolved]
  - Hypoaesthesia [Unknown]
  - Pain in extremity [Not Recovered/Not Resolved]
  - Insomnia [Not Recovered/Not Resolved]
  - Impaired driving ability [Unknown]
  - Confusional state [Unknown]

NARRATIVE: CASE EVENT DATE: 201707
